FAERS Safety Report 19228048 (Version 3)
Quarter: 2021Q2

REPORT INFORMATION
  Report Type: Spontaneous
  Country: AR (occurrence: AR)
  Receive Date: 20210506
  Receipt Date: 20210603
  Transmission Date: 20210717
  Serious: Yes (Hospitalization, Other)
  Sender: FDA-Public Use
  Company Number: AR-ORGANON-O2105ARG000146

PATIENT
  Age: 28 Year
  Sex: Female

DRUGS (2)
  1. IMPLANON NXT [Suspect]
     Active Substance: ETONOGESTREL
     Dosage: 1 IMPLANT
     Route: 059
     Dates: start: 202007, end: 20210427
  2. EFAVIRENZ + EMTRICITABINE + TENOFOVIR [EFAVIRENZ;EMTRICITABINE;TENOFOV [Concomitant]
     Indication: HIV INFECTION
     Dosage: UNK

REACTIONS (4)
  - Abortion induced [Unknown]
  - Inappropriate schedule of product administration [Unknown]
  - Pregnancy with implant contraceptive [Recovered/Resolved]
  - Unintended pregnancy [Recovered/Resolved]

NARRATIVE: CASE EVENT DATE: 202007
